FAERS Safety Report 10397998 (Version 2)
Quarter: 2014Q4

REPORT INFORMATION
  Report Type: Report from Study
  Country: BW (occurrence: BW)
  Receive Date: 20140821
  Receipt Date: 20141029
  Transmission Date: 20150528
  Serious: Yes (Hospitalization)
  Sender: FDA-Public Use
  Company Number: BW-BRISTOL-MYERS SQUIBB COMPANY-21322235

PATIENT
  Age: 3 Week
  Sex: Male
  Weight: 1.9 kg

DRUGS (3)
  1. TRUVADA [Suspect]
     Active Substance: EMTRICITABINE\TENOFOVIR DISOPROXIL FUMARATE
     Dosage: 1 DF = 300/200MG
     Route: 064
     Dates: start: 20110822
  2. EFAVIRENZ [Suspect]
     Active Substance: EFAVIRENZ
     Dosage: LAST DOSE ON 04-FEB-2014
     Route: 064
     Dates: start: 20110822, end: 20140204
  3. ALUVIA [Suspect]
     Active Substance: LOPINAVIR\RITONAVIR
     Dosage: 1 DF = 400/100 MG
     Route: 064
     Dates: start: 20140204

REACTIONS (2)
  - Premature baby [Recovering/Resolving]
  - Respiratory distress [Recovered/Resolved]

NARRATIVE: CASE EVENT DATE: 20140721
